FAERS Safety Report 7700005-9 (Version None)
Quarter: 2011Q3

REPORT INFORMATION
  Report Type: 
  Country: None (occurrence: None)
  Receive Date: 20110822
  Receipt Date: 20110812
  Transmission Date: 20111222
  Serious: Yes (Other)
  Sender: FDA-Public Use
  Company Number: US-BAYER-2010-007147

PATIENT
  Sex: Female
  Weight: 93 kg

DRUGS (3)
  1. YAZ [Suspect]
     Indication: CONTRACEPTION
     Dosage: UNK
     Dates: start: 20091108, end: 20091127
  2. YAZ [Suspect]
     Indication: PREMENSTRUAL SYNDROME
  3. FLAGYL [Concomitant]
     Route: 048

REACTIONS (5)
  - DEEP VEIN THROMBOSIS [None]
  - INJURY [None]
  - EMOTIONAL DISTRESS [None]
  - PAIN [None]
  - ANXIETY [None]
